FAERS Safety Report 10013112 (Version 2)
Quarter: 2014Q1

REPORT INFORMATION
  Report Type: Report from Study
  Country: DE (occurrence: DE)
  Receive Date: 20140314
  Receipt Date: 20140319
  Transmission Date: 20141002
  Serious: Yes (Hospitalization, Other)
  Sender: FDA-Public Use
  Company Number: DE-ABBVIE-14P-062-1209504-00

PATIENT
  Sex: Male
  Weight: 88 kg

DRUGS (5)
  1. HUMIRA [Suspect]
     Indication: CROHN^S DISEASE
     Route: 058
     Dates: start: 20131207, end: 20140118
  2. HUMIRA [Suspect]
     Route: 058
     Dates: start: 20140118, end: 20140201
  3. CIPROFLOXACINE [Concomitant]
     Indication: PRODUCT USED FOR UNKNOWN INDICATION
     Dates: start: 20140124, end: 20140202
  4. CLONT (METRONIDAZOLE) [Concomitant]
     Indication: PRODUCT USED FOR UNKNOWN INDICATION
     Dates: start: 20140124, end: 20140202
  5. PREDISOLONE [Concomitant]
     Indication: PRODUCT USED FOR UNKNOWN INDICATION
     Dates: start: 20140124

REACTIONS (4)
  - Ileal stenosis [Unknown]
  - Intestinal perforation [Recovered/Resolved]
  - Crohn^s disease [Unknown]
  - Mesenteric abscess [Unknown]
